FAERS Safety Report 4673207-6 (Version None)
Quarter: 2005Q2

REPORT INFORMATION
  Report Type: 
  Country: None (occurrence: None)
  Receive Date: 20050525
  Receipt Date: 20050224
  Transmission Date: 20051028
  Serious: No
  Sender: FDA-Public Use
  Company Number: US-GLAXOSMITHKLINE-A0547153A

PATIENT
  Age: 66 Year
  Sex: Male

DRUGS (2)
  1. BACTROBAN [Suspect]
     Indication: WOUND INFECTION
     Dosage: 1APP THREE TIMES PER DAY
     Route: 061
  2. NO CONCURRENT MEDICATION [Concomitant]

REACTIONS (1)
  - DRUG INEFFECTIVE [None]
